FAERS Safety Report 23081175 (Version 2)
Quarter: 2023Q4

REPORT INFORMATION
  Report Type: Spontaneous
  Country: US (occurrence: US)
  Receive Date: 20231018
  Receipt Date: 20231025
  Transmission Date: 20240109
  Serious: Yes (Hospitalization, Other)
  Sender: FDA-Public Use
  Company Number: US-009507513-2310USA007543

PATIENT
  Age: 81 Year
  Sex: Male

DRUGS (1)
  1. KEYTRUDA [Suspect]
     Active Substance: PEMBROLIZUMAB
     Indication: Bladder cancer stage III
     Dosage: UNK, EVERY 3 WEEKS

REACTIONS (4)
  - Immune-mediated myasthenia gravis [Unknown]
  - Immune-mediated myositis [Unknown]
  - Immune-mediated myocarditis [Unknown]
  - Immune-mediated thyroiditis [Unknown]
